FAERS Safety Report 9997015 (Version 1)
Quarter: 2014Q1

REPORT INFORMATION
  Report Type: Spontaneous
  Country: US (occurrence: US)
  Receive Date: 20140311
  Receipt Date: 20140311
  Transmission Date: 20141002
  Serious: No
  Sender: FDA-Public Use
  Company Number: US-GLAXOSMITHKLINE-A1052649A

PATIENT
  Age: 72 Year
  Sex: Male

DRUGS (2)
  1. NICORETTE OTC 4MG [Suspect]
     Indication: PRODUCT USED FOR UNKNOWN INDICATION
     Route: 002
  2. NICOTINE GUM 4MG UNKNOWN BRAND [Concomitant]
     Indication: PRODUCT USED FOR UNKNOWN INDICATION
     Route: 002

REACTIONS (4)
  - Dyspnoea [Unknown]
  - Suffocation feeling [Unknown]
  - Nicotine dependence [Unknown]
  - Intentional drug misuse [Unknown]
